FAERS Safety Report 6932695-2 (Version None)
Quarter: 2010Q3

REPORT INFORMATION
  Report Type: 
  Country: None (occurrence: None)
  Receive Date: 20100819
  Receipt Date: 20100811
  Transmission Date: 20110219
  Serious: Yes (Disabling, Other)
  Sender: FDA-Public Use
  Company Number: DE-WYE-H16927210

PATIENT
  Sex: Male

DRUGS (5)
  1. PANTOZOL [Suspect]
     Indication: GASTROOESOPHAGEAL REFLUX DISEASE
     Route: 048
     Dates: start: 20091229, end: 20100811
  2. VITAMIN B-12 [Concomitant]
     Dosage: UNKNOWN
     Route: 042
  3. SPIRIVA [Concomitant]
     Dosage: UNKNOWN
  4. LYRICA [Concomitant]
     Dosage: UNKNOWN
  5. BEROTEC [Concomitant]
     Dosage: UNKNOWN

REACTIONS (2)
  - VISION BLURRED [None]
  - VISUAL ACUITY REDUCED [None]
